FAERS Safety Report 22527899 (Version 1)
Quarter: 2023Q2

REPORT INFORMATION
  Report Type: Spontaneous
  Country: US (occurrence: US)
  Receive Date: 20230606
  Receipt Date: 20230606
  Transmission Date: 20230722
  Serious: Yes (Other)
  Sender: FDA-Public Use
  Company Number: US-JNJFOC-20230571215

PATIENT
  Sex: Female

DRUGS (5)
  1. REMICADE [Suspect]
     Active Substance: INFLIXIMAB
     Indication: Neurosarcoidosis
     Dosage: 5 TO 10 MG/KG 2 WEEKS FOR 2 DOSES THEN EVERY 4 TO 8 WEEKS
     Route: 041
  2. PREDNISONE [Suspect]
     Active Substance: PREDNISONE
     Indication: Neurosarcoidosis
     Dosage: 5 TO 60 MG/DAY
     Route: 065
  3. AZATHIOPRINE [Suspect]
     Active Substance: AZATHIOPRINE
     Indication: Neurosarcoidosis
     Dosage: 50 TO 200 MG/DAY
     Route: 065
  4. METHOTREXATE [Suspect]
     Active Substance: METHOTREXATE
     Indication: Neurosarcoidosis
     Dosage: 5 TO 25 MG/WEEK PO OR SQ (PRESCRIBED WITH FOLATE)
     Route: 065
  5. ADALIMUMAB [Suspect]
     Active Substance: ADALIMUMAB
     Indication: Neurosarcoidosis
     Dosage: 40 TO 80 MG SQ EVERY 1 TO 2 WEEKS
     Route: 065

REACTIONS (12)
  - Myelosuppression [Unknown]
  - Hepatotoxicity [Unknown]
  - Hepatitis B reactivation [Unknown]
  - Tuberculosis [Unknown]
  - Opportunistic infection [Unknown]
  - Lupus-like syndrome [Unknown]
  - Lymphoma [Unknown]
  - Hepatosplenic T-cell lymphoma [Unknown]
  - Demyelination [Unknown]
  - Cardiovascular disorder [Unknown]
  - Hypersensitivity [Unknown]
  - Off label use [Unknown]
